FAERS Safety Report 8760776 (Version 1)
Quarter: 2012Q4

REPORT INFORMATION
  Report Type: 
  Country: US (occurrence: US)
  Receive Date: 20120829
  Receipt Date: 20120829
  Transmission Date: 20130627
  Serious: Yes (Other)
  Sender: FDA-Public Use
  Company Number: US-ELI_LILLY_AND_COMPANY-US200910007355

PATIENT
  Sex: Male

DRUGS (9)
  1. ZYPREXA [Suspect]
     Indication: BIPOLAR DISORDER
     Dosage: 5 mg, bid
     Route: 048
     Dates: start: 20011107
  2. ZYPREXA [Suspect]
     Dosage: 5 mg, each evening
     Dates: start: 20040312, end: 20040406
  3. LITHIUM [Concomitant]
  4. TRAZODONE [Concomitant]
     Indication: BIPOLAR DISORDER
  5. CLONAZEPAM [Concomitant]
  6. CARBAMAZEPINE [Concomitant]
  7. QUETIAPINE FUMARATE [Concomitant]
  8. DIVALPROEX [Concomitant]
  9. TEMAZEPAM [Concomitant]

REACTIONS (7)
  - Hepatitis C [Unknown]
  - Weight increased [Recovered/Resolved]
  - Visual impairment [Unknown]
  - Platelet count decreased [Unknown]
  - Tremor [Unknown]
  - Red blood cell count decreased [Unknown]
  - White blood cell count decreased [Unknown]
